FAERS Safety Report 4945554-1 (Version None)
Quarter: 2006Q1

REPORT INFORMATION
  Report Type: 
  Country: None (occurrence: None)
  Receive Date: 20060316
  Receipt Date: 20060228
  Transmission Date: 20060701
  Serious: Yes (Hospitalization)
  Sender: FDA-Public Use
  Company Number: US-MERCK-0603USA00084

PATIENT
  Age: 47 Year
  Sex: Female
  Weight: 66 kg

DRUGS (16)
  1. VIOXX [Suspect]
     Indication: BACK PAIN
     Route: 048
     Dates: start: 20011214, end: 20040301
  2. VIOXX [Suspect]
     Route: 048
     Dates: start: 20011214, end: 20040301
  3. VIOXX [Suspect]
     Indication: ARTHRALGIA
     Route: 048
     Dates: start: 20011214, end: 20040301
  4. VIOXX [Suspect]
     Route: 048
     Dates: start: 20011214, end: 20040301
  5. NORTRIPTYLINE [Concomitant]
     Route: 065
  6. COUMADIN [Concomitant]
     Route: 065
  7. K-DUR 10 [Concomitant]
     Route: 065
  8. LASIX [Concomitant]
     Route: 065
  9. PHENERGAN [Concomitant]
     Route: 065
  10. CLONAZEPAM [Concomitant]
     Route: 065
  11. SOMA [Concomitant]
     Route: 065
  12. ROXICET [Concomitant]
     Route: 065
  13. FIORICET TABLETS [Concomitant]
     Route: 065
  14. ATENOLOL [Concomitant]
     Route: 065
  15. EFFEXOR [Concomitant]
     Route: 065
  16. ADALAT [Concomitant]
     Route: 065

REACTIONS (14)
  - ACUTE MYOCARDIAL INFARCTION [None]
  - ACUTE PULMONARY OEDEMA [None]
  - ANAEMIA [None]
  - ARTERIOSCLEROSIS CORONARY ARTERY [None]
  - CARDIAC DISORDER [None]
  - CARDIAC FAILURE CONGESTIVE [None]
  - CARDIAC VALVE DISEASE [None]
  - CARDIOGENIC SHOCK [None]
  - DYSPNOEA [None]
  - GASTROINTESTINAL HAEMORRHAGE [None]
  - HEADACHE [None]
  - HYPOTENSION [None]
  - MYOCARDIAL INFARCTION [None]
  - SYNCOPE [None]
